FAERS Safety Report 21254749 (Version 2)
Quarter: 2022Q3

REPORT INFORMATION
  Report Type: Spontaneous
  Country: US (occurrence: US)
  Receive Date: 20220825
  Receipt Date: 20220916
  Transmission Date: 20221026
  Serious: No
  Sender: FDA-Public Use
  Company Number: US-BIOMARINAP-US-2022-144894

PATIENT

DRUGS (1)
  1. VOXZOGO [Suspect]
     Active Substance: VOSORITIDE
     Indication: Osteochondrodysplasia
     Dosage: 0.32 MILLIGRAM, QD
     Route: 058
     Dates: start: 20220306

REACTIONS (1)
  - Viral rash [Recovered/Resolved]

NARRATIVE: CASE EVENT DATE: 20220501
